FAERS Safety Report 9052623 (Version 1)
Quarter: 2013Q1

REPORT INFORMATION
  Report Type: Report from Study
  Country: DE (occurrence: DE)
  Receive Date: 20130207
  Receipt Date: 20130207
  Transmission Date: 20140127
  Serious: Yes (Other)
  Sender: FDA-Public Use
  Company Number: DE-ASTELLAS-2013US001375

PATIENT
  Sex: Female

DRUGS (2)
  1. ERLOTINIB TABLET [Suspect]
     Indication: NON-SMALL CELL LUNG CANCER
     Dosage: 150 MG, UID/QD
     Route: 048
     Dates: start: 200702
  2. ERLOTINIB TABLET [Suspect]
     Indication: LUNG ADENOCARCINOMA

REACTIONS (7)
  - Aortic stenosis [Unknown]
  - Haemoglobin decreased [Unknown]
  - Metastases to peritoneum [Unknown]
  - Malignant neoplasm progression [Unknown]
  - Haematuria [Unknown]
  - Blood creatinine increased [Unknown]
  - Rash [Unknown]
